FAERS Safety Report 8889180 (Version 2)
Quarter: 2012Q4

REPORT INFORMATION
  Report Type: 
  Country: US (occurrence: US)
  Receive Date: 20121106
  Receipt Date: 20121212
  Transmission Date: 20130627
  Serious: Yes (Hospitalization, Other)
  Sender: FDA-Public Use
  Company Number: US-BAXTER-2012BAX022385

PATIENT
  Sex: Male

DRUGS (2)
  1. DIANEAL PD2 [Suspect]
     Indication: PERITONEAL DIALYSIS
     Route: 033
  2. DIANEAL PD2 (ULTRABAG) [Suspect]
     Indication: PERITONEAL DIALYSIS
     Route: 033

REACTIONS (2)
  - Genital swelling [Unknown]
  - Skin irritation [Recovered/Resolved]
